FAERS Safety Report 18103594 (Version 1)
Quarter: 2020Q3

REPORT INFORMATION
  Report Type: Spontaneous
  Country: US (occurrence: US)
  Receive Date: 20200802
  Receipt Date: 20200802
  Transmission Date: 20201103
  Serious: Yes (Life-Threatening, Hospitalization)
  Sender: FDA-Public Use
  Company Number: None

PATIENT
  Age: 90 Year
  Sex: Male
  Weight: 81.19 kg

DRUGS (1)
  1. HYDROMORPHONE (HYDROMORPHONE HCL 1MG/ML INJ, TUBEX,1ML) [Suspect]
     Active Substance: HYDROMORPHONE HYDROCHLORIDE
     Indication: PAIN
     Route: 042
     Dates: start: 20200312, end: 20200312

REACTIONS (7)
  - Tachypnoea [None]
  - Cough [None]
  - Hypertension [None]
  - Tachycardia [None]
  - Pruritus [None]
  - Urticaria [None]
  - Wheezing [None]

NARRATIVE: CASE EVENT DATE: 20200312
